FAERS Safety Report 20745991 (Version 1)
Quarter: 2022Q2

REPORT INFORMATION
  Report Type: Spontaneous
  Country: TR (occurrence: TR)
  Receive Date: 20220425
  Receipt Date: 20220425
  Transmission Date: 20220720
  Serious: Yes (Death, Other)
  Sender: FDA-Public Use
  Company Number: TR-JAZZ-2022-TR-012661

PATIENT

DRUGS (1)
  1. DEFITELIO [Suspect]
     Active Substance: DEFIBROTIDE SODIUM
     Indication: Prophylaxis
     Dosage: 25 MILLIGRAM/KILOGRAM, QD FOR 21 DAYS

REACTIONS (2)
  - Death [Fatal]
  - Off label use [Unknown]
